FAERS Safety Report 7800503-3 (Version None)
Quarter: 2011Q4

REPORT INFORMATION
  Report Type: 
  Country: None (occurrence: None)
  Receive Date: 20111006
  Receipt Date: 20110926
  Transmission Date: 20120403
  Serious: Yes (Hospitalization)
  Sender: FDA-Public Use
  Company Number: US-ASTRAZENECA-2011SE54190

PATIENT
  Age: 50 Year
  Sex: Female
  Weight: 54.4 kg

DRUGS (10)
  1. SEROQUEL [Suspect]
     Indication: SCHIZOPHRENIA
     Route: 048
  2. SEROQUEL [Suspect]
     Route: 048
     Dates: start: 20100615, end: 20101029
  3. AMBIEN [Concomitant]
     Indication: INSOMNIA
     Dates: start: 20090606, end: 20100621
  4. SEROQUEL [Suspect]
     Indication: INSOMNIA
     Route: 048
  5. SEROQUEL [Suspect]
     Route: 048
     Dates: start: 20100615, end: 20101029
  6. DIAZEPAM [Concomitant]
  7. LITHIUM [Concomitant]
  8. RISPERDAL [Concomitant]
     Indication: SCHIZOPHRENIA
     Dosage: 0.25 TO 2 MG, DAILY
     Dates: start: 20091010, end: 20101101
  9. CELEXA [Concomitant]
     Indication: DEPRESSION
     Dates: start: 20091010, end: 20101220
  10. OXAZEPAM [Concomitant]
     Indication: ANXIETY
     Dates: start: 20080409, end: 20110314

REACTIONS (4)
  - WEIGHT INCREASED [None]
  - SCHIZOPHRENIA [None]
  - SCHIZOAFFECTIVE DISORDER [None]
  - OFF LABEL USE [None]
